FAERS Safety Report 10237339 (Version 1)
Quarter: 2014Q2

REPORT INFORMATION
  Report Type: Spontaneous
  Country: US (occurrence: US)
  Receive Date: 20140613
  Receipt Date: 20140613
  Transmission Date: 20141212
  Serious: Yes (Other)
  Sender: FDA-Public Use
  Company Number: US-RB-068600-14

PATIENT
  Age: 47 Year
  Sex: Female

DRUGS (1)
  1. BUPRENORPHINE GENERIC [Suspect]
     Indication: DRUG DEPENDENCE
     Dosage: SUBOXONE FILM; PRESCRIBED TO 8 MG/TWICE DAILY BUT CUTTING AND TAKING 4 MG/TWICE DAILY
     Route: 060
     Dates: start: 20140607, end: 20140608

REACTIONS (6)
  - Wrong technique in drug usage process [Recovered/Resolved]
  - Intentional underdose [Recovered/Resolved]
  - Suicidal ideation [Recovered/Resolved]
  - Hallucination, visual [Recovered/Resolved]
  - Vision blurred [Recovered/Resolved]
  - Anxiety [Recovered/Resolved]
